FAERS Safety Report 7827668-1 (Version None)
Quarter: 2011Q4

REPORT INFORMATION
  Report Type: 
  Country: None (occurrence: None)
  Receive Date: 20111020
  Receipt Date: 20111018
  Transmission Date: 20120403
  Serious: Yes (Death)
  Sender: FDA-Public Use
  Company Number: FR-KINGPHARMUSA00001-K201101233

PATIENT
  Age: 78 Year
  Sex: Female

DRUGS (2)
  1. FELODIPINE [Suspect]
     Indication: HYPERTENSION
     Dosage: EVERY 24 HOURS
     Route: 048
     Dates: start: 20050101, end: 20110921
  2. ALTACE [Suspect]
     Indication: HYPERTENSION
     Dosage: 1/2 TABLET OF 2.5MG, EVERY 24 HOURS
     Route: 048
     Dates: start: 20050101, end: 20110921

REACTIONS (2)
  - PULMONARY EMBOLISM [None]
  - MYOCARDIAL INFARCTION [None]
